FAERS Safety Report 19190135 (Version 1)
Quarter: 2021Q2

REPORT INFORMATION
  Report Type: Spontaneous
  Country: US (occurrence: US)
  Receive Date: 20210428
  Receipt Date: 20210428
  Transmission Date: 20210717
  Serious: No
  Sender: FDA-Public Use
  Company Number: None

PATIENT
  Age: 53 Year
  Sex: Female
  Weight: 58.5 kg

DRUGS (9)
  1. TAMOXIFEN [Suspect]
     Active Substance: TAMOXIFEN
     Indication: BREAST CANCER
     Dosage: ?          QUANTITY:1 TABLET(S);?
     Route: 048
     Dates: start: 20190901
  2. RED YEAST RICE [Concomitant]
     Active Substance: DIETARY SUPPLEMENT
  3. MILK THISTLE [Concomitant]
     Active Substance: DIETARY SUPPLEMENT\HERBALS\MILK THISTLE
  4. MAGNESIUM CITRATE. [Concomitant]
     Active Substance: MAGNESIUM CITRATE
  5. ZINC. [Concomitant]
     Active Substance: ZINC
  6. NIACIN. [Concomitant]
     Active Substance: NIACIN
  7. VITAMINS:  C, D [Concomitant]
  8. DIM [Concomitant]
  9. TAMOXIFEN SYNTHROID [Concomitant]

REACTIONS (8)
  - Lacrimation increased [None]
  - Myalgia [None]
  - Eye pruritus [None]
  - Vision blurred [None]
  - Vitreous floaters [None]
  - Arthralgia [None]
  - Ocular hyperaemia [None]
  - Muscle spasms [None]

NARRATIVE: CASE EVENT DATE: 20210128
